FAERS Safety Report 10582473 (Version 2)
Quarter: 2014Q4

REPORT INFORMATION
  Report Type: Spontaneous
  Country: US (occurrence: US)
  Receive Date: 20141113
  Receipt Date: 20141113
  Transmission Date: 20150529
  Serious: No
  Sender: FDA-Public Use
  Company Number: US-ENDO PHARMACEUTICALS INC.-VALS20140025

PATIENT
  Age: 89 Year
  Sex: Male
  Weight: 92.16 kg

DRUGS (1)
  1. VALSTAR [Suspect]
     Active Substance: VALRUBICIN
     Indication: BLADDER CANCER
     Route: 043
     Dates: start: 20140422, end: 20140506

REACTIONS (4)
  - Drug administration error [Recovered/Resolved]
  - Underdose [Recovered/Resolved]
  - Urge incontinence [Recovered/Resolved]
  - Bladder instillation procedure [Recovered/Resolved]

NARRATIVE: CASE EVENT DATE: 20140422
